FAERS Safety Report 25589657 (Version 2)
Quarter: 2025Q3

REPORT INFORMATION
  Report Type: Spontaneous
  Country: US (occurrence: US)
  Receive Date: 20250722
  Receipt Date: 20250725
  Transmission Date: 20251020
  Serious: No
  Sender: Kenvue
  Company Number: US-KENVUE-20250703932

PATIENT
  Sex: Female

DRUGS (3)
  1. TYLENOL 8 HR ARTHRITIS PAIN [Suspect]
     Active Substance: ACETAMINOPHEN
     Indication: Osteoarthritis
     Route: 065
     Dates: start: 20250610
  2. VITAMINS [Concomitant]
     Active Substance: VITAMINS
     Indication: Product used for unknown indication
     Route: 065
  3. COFFEE [Concomitant]
     Active Substance: ARABICA COFFEE BEAN\COFFEE BEAN
     Indication: Product used for unknown indication

REACTIONS (4)
  - Dizziness [Not Recovered/Not Resolved]
  - Pain [Not Recovered/Not Resolved]
  - Off label use [Unknown]
  - Wrong technique in product usage process [Unknown]

NARRATIVE: CASE EVENT DATE: 20250610
